FAERS Safety Report 24940412 (Version 2)
Quarter: 2025Q1

REPORT INFORMATION
  Report Type: Spontaneous
  Country: BR (occurrence: BR)
  Receive Date: 20250207
  Receipt Date: 20250218
  Transmission Date: 20250408
  Serious: Yes (Death, Other)
  Sender: DR REDDYS
  Company Number: BR-Dr. Reddys Brasil-BRA/2025/01/001211

PATIENT
  Sex: Male

DRUGS (1)
  1. ABIRATERONE ACETATE [Suspect]
     Active Substance: ABIRATERONE ACETATE
     Indication: Prostate cancer
     Route: 065

REACTIONS (2)
  - Malignant neoplasm progression [Fatal]
  - Drug ineffective [Fatal]
